FAERS Safety Report 9552015 (Version 2)
Quarter: 2013Q4

REPORT INFORMATION
  Report Type: Spontaneous
  Country: US (occurrence: US)
  Receive Date: 20130925
  Receipt Date: 20131001
  Transmission Date: 20140711
  Serious: Yes (Hospitalization)
  Sender: FDA-Public Use
  Company Number: US-MERCK-1309USA010174

PATIENT
  Age: 87 Year
  Sex: Male

DRUGS (6)
  1. INVANZ [Suspect]
     Dosage: 1 G, QD
     Route: 042
     Dates: start: 20130910, end: 20130910
  2. LISINOPRIL [Concomitant]
     Dosage: 20 MG, BID
     Route: 048
  3. MELOXICAM [Concomitant]
     Dosage: 7.5 MG, BID
  4. PANTOPRAZOLE [Concomitant]
     Dosage: 40 MG, QD
  5. CARAFATE [Concomitant]
     Dosage: 1 G, TID
  6. AMBIEN [Concomitant]

REACTIONS (1)
  - Chest pain [Recovered/Resolved]
